FAERS Safety Report 4764462-2 (Version None)
Quarter: 2005Q3

REPORT INFORMATION
  Report Type: 
  Country: None (occurrence: None)
  Receive Date: 20050906
  Receipt Date: 20050822
  Transmission Date: 20060218
  Serious: Yes (Hospitalization)
  Sender: FDA-Public Use
  Company Number: HQWYE597531MAR05

PATIENT
  Age: 82 Year
  Sex: Female

DRUGS (7)
  1. EUPANTOL (PANTOPRAZOLE) [Suspect]
     Dosage: 20 MG 1X PER 1 DAY
     Route: 048
  2. AMLODIPINE BESYLATE [Suspect]
     Dosage: SOME DOSE FORM SOMETIMES
     Route: 048
  3. ATACAND [Suspect]
     Dosage: 8 MG 1X PER 1 DAY
     Route: 048
     Dates: end: 20050221
  4. FENOFIBRATE [Suspect]
     Dosage: 160 MG 1X PER 1 DAY
     Route: 048
  5. NIMESULIDE (NIMESULIDE) [Suspect]
     Dosage: 150 MG 1X PER 1 DAY
     Route: 048
  6. NOCTRAN 10 (ACEPROMAZINE/ACEPROMETAZINE/CLORAZEPATE DIPOTASSIUM) [Suspect]
     Dosage: 20 MG 1X PER 1 DAY
     Route: 048
     Dates: end: 20050215
  7. COLCHIMAX (COLCHICINE/DICYCLOVERINE HYDROCHLORIDE) [Concomitant]

REACTIONS (6)
  - ANAEMIA [None]
  - ARTHRALGIA [None]
  - BLOOD CREATINE INCREASED [None]
  - INFLAMMATION [None]
  - LUPUS-LIKE SYNDROME [None]
  - SYSTEMIC LUPUS ERYTHEMATOSUS [None]
